FAERS Safety Report 6590815-6 (Version None)
Quarter: 2010Q1

REPORT INFORMATION
  Report Type: 
  Country: None (occurrence: None)
  Receive Date: 20100219
  Receipt Date: 20100209
  Transmission Date: 20100710
  Serious: Yes (Hospitalization)
  Sender: FDA-Public Use
  Company Number: AT-PFIZER INC-2010017205

PATIENT
  Sex: Male

DRUGS (7)
  1. LYRICA [Suspect]
     Indication: POSTOPERATIVE ANALGESIA
     Dosage: 75 MG, 2X/DAY
     Route: 048
     Dates: start: 20091102, end: 20091101
  2. INSULIN [Concomitant]
     Dosage: UNK
  3. PANTOLOC ^NYCOMED^ [Concomitant]
     Dosage: UNK
  4. MUNDIDOL [Concomitant]
     Dosage: 120 MG, UNK
  5. ZOLPIDEM TARTRATE [Concomitant]
     Dosage: UNK
  6. STABLON [Concomitant]
     Dosage: UNK
  7. FLUANXOL ^LUNDBECK^ [Concomitant]
     Dosage: UNK

REACTIONS (2)
  - GASTROINTESTINAL DISORDER [None]
  - URINARY RETENTION [None]
